FAERS Safety Report 7162219-9 (Version None)
Quarter: 2010Q4

REPORT INFORMATION
  Report Type: 
  Country: None (occurrence: None)
  Receive Date: 20101215
  Receipt Date: 20090916
  Transmission Date: 20110411
  Serious: Yes (Hospitalization)
  Sender: FDA-Public Use
  Company Number: US-PFIZER INC-2009243043

PATIENT
  Sex: Female
  Weight: 89.342 kg

DRUGS (17)
  1. BLINDED *NO SUBJECT DRUG [Suspect]
     Indication: PARTIAL SEIZURES
     Dosage: UNK
     Route: 048
     Dates: start: 20090609, end: 20090719
  2. PREGABALIN [Suspect]
     Indication: PARTIAL SEIZURES
     Dosage: UNK
     Route: 048
     Dates: start: 20090609, end: 20090719
  3. DEPAKOTE [Suspect]
     Indication: CONVULSION
     Dosage: 1000 MG, 2X/DAY
     Route: 048
  4. ZYRTEC [Concomitant]
     Dosage: UNK
     Route: 048
  5. VASOTEC [Concomitant]
     Dosage: UNK
     Route: 048
  6. LOPRESSOR [Concomitant]
     Dosage: UNK
     Route: 048
  7. CYMBALTA [Concomitant]
     Dosage: UNK
     Route: 048
  8. VISTARIL [Concomitant]
     Dosage: UNK
     Route: 048
     Dates: start: 20090402
  9. FIORINAL [Concomitant]
     Dosage: UNK
     Route: 048
     Dates: start: 19690101
  10. ALBUTEROL [Concomitant]
     Dosage: UNK
     Route: 055
  11. FOLIC ACID [Concomitant]
     Route: 048
  12. MULTI-VITAMINS [Concomitant]
     Dosage: UNK
     Route: 048
  13. VITAMIN D [Concomitant]
     Dosage: UNK
     Route: 048
  14. ASCORBIC ACID [Concomitant]
     Dosage: UNK
     Route: 048
  15. IRON [Concomitant]
     Route: 048
  16. CALCIUM WITH VITAMIN D [Concomitant]
     Dosage: UNK
     Route: 048
  17. VITAMIN B-12 [Concomitant]
     Dosage: UNK

REACTIONS (1)
  - GRAND MAL CONVULSION [None]
